FAERS Safety Report 4800715-7 (Version None)
Quarter: 2005Q4

REPORT INFORMATION
  Report Type: 
  Country: None (occurrence: None)
  Receive Date: 20051011
  Receipt Date: 20050928
  Transmission Date: 20060501
  Serious: Yes (Hospitalization, Disabling)
  Sender: FDA-Public Use
  Company Number: 2005-133197-NL

PATIENT
  Age: 77 Year
  Sex: Male

DRUGS (1)
  1. TICE BCG [Suspect]
     Indication: BLADDER CANCER
     Dosage: INTRAVESICAL
     Route: 043

REACTIONS (3)
  - MYCOBACTERIAL INFECTION [None]
  - MYELOFIBROSIS [None]
  - PANCYTOPENIA [None]
